FAERS Safety Report 16606782 (Version 1)
Quarter: 2019Q3

REPORT INFORMATION
  Report Type: Spontaneous
  Country: FR (occurrence: FR)
  Receive Date: 20190722
  Receipt Date: 20190722
  Transmission Date: 20191004
  Serious: Yes (Hospitalization)
  Sender: FDA-Public Use
  Company Number: FR-SA-2019SA187935

PATIENT
  Age: 77 Year
  Sex: Male
  Weight: 80 kg

DRUGS (12)
  1. TRAMADOL ACTAVIS [Concomitant]
     Active Substance: TRAMADOL
     Dosage: 50 MG
     Route: 048
  2. DEXAFREE [Concomitant]
     Active Substance: DEXAMETHASONE SODIUM PHOSPHATE
     Dosage: 3 DROP, QD
     Route: 047
     Dates: start: 20190107, end: 20190207
  3. PARACETAMOL ACTAVIS [Concomitant]
     Active Substance: ACETAMINOPHEN
     Dosage: 1 G
     Route: 048
  4. CANDESARTAN CILEXETIL;HYDROCHLOROTHIAZIDE [Concomitant]
     Dosage: 16 MG/12.5 MG
     Route: 048
  5. PLAVIX [Suspect]
     Active Substance: CLOPIDOGREL BISULFATE
     Indication: PERIPHERAL ARTERY STENOSIS
     Dosage: 75 MG, QD
     Route: 048
     Dates: start: 20190220, end: 20190327
  6. OFLOCET [Suspect]
     Active Substance: OFLOXACIN
     Indication: PROPHYLAXIS
     Dosage: 400 UG, QD
     Route: 048
     Dates: start: 20190123
  7. DULCILARMES [Concomitant]
     Dosage: 2 DROP, QD
     Route: 047
     Dates: start: 20190122, end: 20190220
  8. INDOCOLLYRE [Concomitant]
     Active Substance: INDOMETHACIN
     Dosage: 9 DROP, QD
     Route: 047
     Dates: start: 20190107, end: 20190220
  9. COSIDIME [Concomitant]
     Active Substance: DORZOLAMIDE HYDROCHLORIDE\TIMOLOL MALEATE
     Dosage: 20 MG/ML + 5 MG/ML,
     Route: 047
     Dates: start: 20190122, end: 20190220
  10. AZYTER [Concomitant]
     Active Substance: AZITHROMYCIN ANHYDROUS
     Dosage: 2 DROP, QD
     Route: 047
     Dates: start: 20190122, end: 20190125
  11. OMEPRAZOLE ACTAVIS [Concomitant]
     Active Substance: OMEPRAZOLE
     Dosage: 20 MG, QD
     Route: 048
  12. IOPIDINE [Concomitant]
     Active Substance: APRACLONIDINE HYDROCHLORIDE
     Dosage: 3 DROP, QD
     Route: 047
     Dates: start: 20190122

REACTIONS (2)
  - Aortic stenosis [Recovered/Resolved]
  - Aortic dissection [Recovered/Resolved]

NARRATIVE: CASE EVENT DATE: 201902
